FAERS Safety Report 6243935-X (Version None)
Quarter: 2009Q2

REPORT INFORMATION
  Report Type: 
  Country: None (occurrence: None)
  Receive Date: 20090623
  Receipt Date: 20090608
  Transmission Date: 20091009
  Serious: Yes (Hospitalization)
  Sender: FDA-Public Use
  Company Number: 236440K09USA

PATIENT
  Age: 60 Year
  Sex: Female

DRUGS (3)
  1. REBIF [Suspect]
     Indication: MULTIPLE SCLEROSIS
     Dosage: 44 MCG, 3 IN 1 WEEKS, SUBCUTANEOUS
     Route: 058
     Dates: start: 20060606
  2. CYMBALTA [Concomitant]
  3. CORTISONE (CORTISONE /00014601/) [Concomitant]

REACTIONS (5)
  - ABDOMINAL PAIN UPPER [None]
  - CELLULITIS [None]
  - FALL [None]
  - HEAD INJURY [None]
  - TRAUMATIC HAEMORRHAGE [None]
